FAERS Safety Report 16527879 (Version 3)
Quarter: 2021Q1

REPORT INFORMATION
  Report Type: Report from Study
  Country: BR (occurrence: BR)
  Receive Date: 20190703
  Receipt Date: 20210220
  Transmission Date: 20210419
  Serious: Yes (Disabling, Other)
  Sender: FDA-Public Use
  Company Number: BR-TAKEDA-2017TUS019908

PATIENT
  Age: 69 Year
  Sex: Male
  Weight: 51.3 kg

DRUGS (4)
  1. VEDOLIZUMAB [Suspect]
     Active Substance: VEDOLIZUMAB
     Indication: COLITIS ULCERATIVE
     Dosage: 300 MILLIGRAM, Q8WEEKS
     Route: 042
     Dates: start: 20170607
  2. AZATHIOPRINE. [Suspect]
     Active Substance: AZATHIOPRINE
     Indication: COLITIS ULCERATIVE
     Dosage: 150 MILLIGRAM, QD
     Route: 065
  3. SULFASALAZINE. [Suspect]
     Active Substance: SULFASALAZINE
     Indication: COLITIS ULCERATIVE
     Dosage: 2 GRAM, QD
     Route: 065
  4. MESALAZINE [Suspect]
     Active Substance: MESALAMINE
     Indication: COLITIS ULCERATIVE
     Dosage: 1 GRAM, QD

REACTIONS (7)
  - Back pain [Not Recovered/Not Resolved]
  - Prostate cancer metastatic [Recovered/Resolved with Sequelae]
  - Off label use [Unknown]
  - Colitis ulcerative [Not Recovered/Not Resolved]
  - Arthralgia [Not Recovered/Not Resolved]
  - Gait disturbance [Not Recovered/Not Resolved]
  - Metastases to bone [Recovered/Resolved with Sequelae]

NARRATIVE: CASE EVENT DATE: 20171005
